FAERS Safety Report 7282305-2 (Version None)
Quarter: 2011Q1

REPORT INFORMATION
  Report Type: 
  Country: None (occurrence: None)
  Receive Date: 20110209
  Receipt Date: 20110203
  Transmission Date: 20110831
  Serious: Yes (Hospitalization, Other)
  Sender: FDA-Public Use
  Company Number: PH-PFIZER INC-2011018249

PATIENT
  Age: 71 Year
  Sex: Male
  Weight: 67.2 kg

DRUGS (4)
  1. VFEND [Suspect]
     Dosage: 200 MG, 1X/DAY
     Dates: start: 20110109
  2. HYDROCORTISONE [Suspect]
     Dosage: UNK
     Dates: start: 20110109
  3. MEROPENEM [Suspect]
     Dosage: 1 G, 3X/DAY
     Dates: start: 20110109
  4. AMIKACIN [Suspect]
     Dosage: 500 MG, 1X/DAY
     Route: 042
     Dates: start: 20110109

REACTIONS (1)
  - INFECTION PARASITIC [None]
